FAERS Safety Report 21981335 (Version 3)
Quarter: 2023Q2

REPORT INFORMATION
  Report Type: Report from Study
  Country: US (occurrence: US)
  Receive Date: 20230211
  Receipt Date: 20230610
  Transmission Date: 20230721
  Serious: No
  Sender: FDA-Public Use
  Company Number: US-002147023-NVSC2023US031021

PATIENT
  Sex: Male

DRUGS (1)
  1. TABRECTA [Suspect]
     Active Substance: CAPMATINIB
     Indication: Product used for unknown indication
     Dosage: UNK, BID
     Route: 048
     Dates: start: 20221119

REACTIONS (5)
  - Peripheral swelling [Unknown]
  - Nausea [Unknown]
  - Dyspepsia [Recovered/Resolved]
  - Sleep disorder [Unknown]
  - Product dose omission issue [Recovered/Resolved with Sequelae]
